FAERS Safety Report 5074850-5 (Version None)
Quarter: 2006Q3

REPORT INFORMATION
  Report Type: 
  Country: None (occurrence: None)
  Receive Date: 20060717
  Receipt Date: 20060327
  Transmission Date: 20061208
  Serious: No
  Sender: FDA-Public Use
  Company Number: 2005001878

PATIENT
  Age: 78 Year
  Sex: Female
  Weight: 49.8957 kg

DRUGS (9)
  1. TARCEVA [Suspect]
     Indication: NON-SMALL CELL LUNG CANCER
     Dosage: STOPPED TARCEVA FOR 1 WEEK
     Dates: start: 20060301, end: 20060327
  2. TARCEVA [Suspect]
     Indication: NON-SMALL CELL LUNG CANCER
     Dosage: STOPPED TARCEVA FOR 1 WEEK
     Dates: start: 20050501
  3. CARDIZEM [Concomitant]
  4. LESCOL [Concomitant]
  5. SYNTHROID [Concomitant]
  6. PROZAC [Concomitant]
  7. LITHIUM (LITHIUM) [Concomitant]
  8. REMERON [Concomitant]
  9. ATIVAN [Concomitant]

REACTIONS (13)
  - ALOPECIA [None]
  - ASTHENIA [None]
  - DIARRHOEA [None]
  - DRY SKIN [None]
  - ERYTHEMA [None]
  - FURUNCLE [None]
  - HAIR GROWTH ABNORMAL [None]
  - METASTASES TO SPINE [None]
  - ONYCHOMADESIS [None]
  - PAIN OF SKIN [None]
  - PRURITUS [None]
  - RASH PUSTULAR [None]
  - SKIN EXFOLIATION [None]
